FAERS Safety Report 22355966 (Version 1)
Quarter: 2023Q2

REPORT INFORMATION
  Report Type: Spontaneous
  Country: US (occurrence: None)
  Receive Date: 20230523
  Receipt Date: 20230523
  Transmission Date: 20230722
  Serious: No
  Sender: FDA-Public Use
  Company Number: None

PATIENT

DRUGS (2)
  1. EXPAREL [Suspect]
     Active Substance: BUPIVACAINE
  2. LIDOCAINE [Suspect]
     Active Substance: LIDOCAINE

REACTIONS (4)
  - Extra dose administered [None]
  - Local anaesthetic systemic toxicity [None]
  - Contraindicated product administered [None]
  - Drug monitoring procedure not performed [None]
